FAERS Safety Report 11848817 (Version 2)
Quarter: 2015Q4

REPORT INFORMATION
  Report Type: Report from Study
  Country: ID (occurrence: ID)
  Receive Date: 20151218
  Receipt Date: 20151223
  Transmission Date: 20160305
  Serious: Yes (Death, Hospitalization)
  Sender: FDA-Public Use
  Company Number: ID-ROCHE-1679250

PATIENT
  Sex: Male

DRUGS (1)
  1. MABTHERA [Suspect]
     Active Substance: RITUXIMAB
     Indication: PRODUCT USED FOR UNKNOWN INDICATION
     Route: 065

REACTIONS (8)
  - Stomatitis [Unknown]
  - Hypotension [Unknown]
  - Death [Fatal]
  - Pulmonary oedema [Unknown]
  - Thrombocytopenia [Unknown]
  - Cough [Unknown]
  - Blood glucose increased [Unknown]
  - Limb injury [Unknown]
